FAERS Safety Report 9671430 (Version 3)
Quarter: 2014Q1

REPORT INFORMATION
  Report Type: Report from Study
  Country: US (occurrence: US)
  Receive Date: 20131106
  Receipt Date: 20140129
  Transmission Date: 20141002
  Serious: Yes (Hospitalization)
  Sender: FDA-Public Use
  Company Number: US-ROCHE-1077593

PATIENT
  Age: 83 Year
  Sex: Female
  Weight: 53 kg

DRUGS (14)
  1. RITUXIMAB [Suspect]
     Indication: CHRONIC LYMPHOCYTIC LEUKAEMIA
     Route: 042
     Dates: start: 20110505, end: 20110913
  2. RITUXIMAB [Suspect]
     Route: 042
     Dates: start: 20130723, end: 20130813
  3. FLUDARABINE [Suspect]
     Indication: CHRONIC LYMPHOCYTIC LEUKAEMIA
     Route: 042
     Dates: start: 20110711, end: 20110915
  4. CYCLOPHOSPHAMIDE [Suspect]
     Indication: CHRONIC LYMPHOCYTIC LEUKAEMIA
     Route: 042
     Dates: start: 20110711, end: 20110915
  5. ALLOPURINOL [Concomitant]
     Indication: PROPHYLACTIC CHEMOTHERAPY
     Route: 048
     Dates: start: 20110428, end: 20111018
  6. ACYCLOVIR [Concomitant]
     Route: 065
     Dates: start: 20110701, end: 20111018
  7. AMLODIPIN [Concomitant]
     Indication: HYPERTENSION
     Route: 065
     Dates: start: 20070718
  8. ASA [Concomitant]
     Indication: CARDIOVASCULAR EVENT PROPHYLAXIS
     Route: 048
     Dates: start: 20110711, end: 20111018
  9. BACTRIM DS [Concomitant]
     Indication: PROPHYLACTIC CHEMOTHERAPY
     Dosage: DOSE: 800/160 MG
     Route: 048
     Dates: start: 20110623, end: 20120808
  10. DIFLUCAN [Concomitant]
     Route: 048
     Dates: start: 20110630, end: 20111018
  11. LEVOTHYROXINE [Concomitant]
     Indication: HYPOTHYROIDISM
     Route: 048
     Dates: start: 20070202
  12. NYSTATIN [Concomitant]
     Route: 065
     Dates: start: 20110808, end: 20111018
  13. PRAVASTATIN [Concomitant]
     Route: 048
     Dates: start: 20101018
  14. ROPINIROLE [Concomitant]
     Route: 048
     Dates: start: 20110608, end: 20111209

REACTIONS (4)
  - Pancytopenia [Recovered/Resolved]
  - Febrile neutropenia [Recovered/Resolved]
  - Anaemia [Recovered/Resolved]
  - Hyponatraemia [Recovered/Resolved]
